FAERS Safety Report 13556964 (Version 1)
Quarter: 2017Q2

REPORT INFORMATION
  Report Type: Spontaneous
  Country: US (occurrence: US)
  Receive Date: 20170517
  Receipt Date: 20170517
  Transmission Date: 20170830
  Serious: Yes (Hospitalization, Disabling, Other)
  Sender: FDA-Public Use
  Company Number: None

PATIENT
  Age: 32 Year
  Sex: Female
  Weight: 103.5 kg

DRUGS (8)
  1. LITHIUM. [Concomitant]
     Active Substance: LITHIUM
  2. KLONOPIN [Concomitant]
     Active Substance: CLONAZEPAM
  3. SINGULAIR [Concomitant]
     Active Substance: MONTELUKAST SODIUM
  4. LYRICA [Concomitant]
     Active Substance: PREGABALIN
  5. AMBIEN [Concomitant]
     Active Substance: ZOLPIDEM TARTRATE
  6. INFERRIOUS SULFATE [Concomitant]
  7. VITAMIN D3 [Concomitant]
     Active Substance: CHOLECALCIFEROL
  8. PROPOFOL. [Suspect]
     Active Substance: PROPOFOL
     Indication: OVERDOSE

REACTIONS (4)
  - Hallucination [None]
  - Abnormal dreams [None]
  - Delusion [None]
  - Nightmare [None]

NARRATIVE: CASE EVENT DATE: 20161207
